FAERS Safety Report 15089552 (Version 1)
Quarter: 2018Q2

REPORT INFORMATION
  Report Type: Spontaneous
  Country: FI (occurrence: FI)
  Receive Date: 20180629
  Receipt Date: 20180629
  Transmission Date: 20180711
  Serious: Yes (Other)
  Sender: FDA-Public Use
  Company Number: FI-ROCHE-2145430

PATIENT
  Age: 25 Year
  Sex: Male

DRUGS (28)
  1. SOLOMET [Concomitant]
     Dosage: DOSE REDUCED GRADUALLY TO 8 MGX1
     Route: 065
  2. SOLOMET [Concomitant]
     Route: 065
     Dates: start: 20070125, end: 200702
  3. SOLOMET [Concomitant]
     Route: 065
     Dates: start: 200612, end: 200612
  4. SOLOMET [Concomitant]
     Route: 065
     Dates: start: 2008, end: 2008
  5. HUMIRA [Suspect]
     Active Substance: ADALIMUMAB
     Indication: SPONDYLOARTHROPATHY
     Route: 058
     Dates: start: 2008, end: 201804
  6. MERCAPTOPURINE. [Concomitant]
     Active Substance: MERCAPTOPURINE
     Indication: PRODUCT USED FOR UNKNOWN INDICATION
     Route: 065
     Dates: start: 200610, end: 200612
  7. ROACTEMRA [Suspect]
     Active Substance: TOCILIZUMAB
     Indication: PRODUCT USED FOR UNKNOWN INDICATION
     Route: 065
  8. HUMIRA [Suspect]
     Active Substance: ADALIMUMAB
     Route: 058
     Dates: end: 2011
  9. SOLOMET [Concomitant]
     Route: 065
     Dates: start: 2008, end: 2008
  10. SOLOMET [Concomitant]
     Route: 065
     Dates: start: 2008
  11. SOLOMET [Concomitant]
     Route: 065
     Dates: start: 200804, end: 2008
  12. METHOTREXATE. [Concomitant]
     Active Substance: METHOTREXATE
     Indication: PRODUCT USED FOR UNKNOWN INDICATION
     Route: 065
     Dates: start: 2008
  13. SOLOMET [Concomitant]
     Route: 065
     Dates: start: 200702, end: 2007
  14. HUMIRA [Suspect]
     Active Substance: ADALIMUMAB
     Indication: CROHN^S DISEASE
     Route: 058
     Dates: start: 200702, end: 2008
  15. CIMZIA [Suspect]
     Active Substance: CERTOLIZUMAB PEGOL
     Indication: PRODUCT USED FOR UNKNOWN INDICATION
     Route: 065
  16. SOLOMET [Concomitant]
     Indication: PRODUCT USED FOR UNKNOWN INDICATION
     Route: 065
     Dates: start: 200701, end: 20070125
  17. SOLOMET [Concomitant]
     Route: 065
     Dates: start: 2006, end: 2006
  18. HUMIRA [Suspect]
     Active Substance: ADALIMUMAB
     Route: 058
     Dates: start: 20070125, end: 20070125
  19. HUMIRA [Suspect]
     Active Substance: ADALIMUMAB
     Route: 058
     Dates: start: 200804
  20. SOLOMET [Concomitant]
     Route: 065
     Dates: start: 2006, end: 2006
  21. SOLOMET [Concomitant]
     Route: 065
     Dates: start: 2007
  22. SOLOMET [Concomitant]
     Route: 065
     Dates: start: 200610, end: 2006
  23. SOMAC [Concomitant]
     Active Substance: PANTOPRAZOLE SODIUM
     Indication: PRODUCT USED FOR UNKNOWN INDICATION
     Route: 065
     Dates: start: 200612
  24. FOLVITE [Concomitant]
     Active Substance: FOLIC ACID
     Indication: PRODUCT USED FOR UNKNOWN INDICATION
     Dosage: 1 MG X 1 AND ON METHOTREXATE DAYS 4 MG X 1
     Route: 065
  25. SOLOMET [Concomitant]
     Route: 065
     Dates: start: 2006, end: 2006
  26. MERCAPTOPURINE. [Concomitant]
     Active Substance: MERCAPTOPURINE
     Route: 065
     Dates: start: 200612, end: 200804
  27. METHOTREXATE. [Concomitant]
     Active Substance: METHOTREXATE
     Route: 065
     Dates: start: 200804, end: 2008
  28. METHOTREXATE. [Concomitant]
     Active Substance: METHOTREXATE
     Route: 065
     Dates: start: 2008, end: 2008

REACTIONS (62)
  - Anal fistula [Unknown]
  - Vomiting [Recovered/Resolved]
  - Synovitis [Recovered/Resolved]
  - Food intolerance [Unknown]
  - Kyphosis [Unknown]
  - Spinal disorder [Unknown]
  - Back pain [Recovered/Resolved]
  - Fatigue [Unknown]
  - Rectal ulcer [Unknown]
  - Gastrointestinal motility disorder [Unknown]
  - Diarrhoea [Unknown]
  - Hypoaesthesia [Unknown]
  - Aphthous ulcer [Unknown]
  - Arthralgia [Unknown]
  - Abdominal pain [Unknown]
  - Anal fistula [Unknown]
  - Muscle strain [Unknown]
  - Posture abnormal [Unknown]
  - Frequent bowel movements [Unknown]
  - Hypovitaminosis [Unknown]
  - Gastrointestinal pain [Unknown]
  - Red blood cell microcytes present [Unknown]
  - Gastrointestinal inflammation [Unknown]
  - Crohn^s disease [Unknown]
  - Dry mouth [Unknown]
  - Fistula of small intestine [Recovered/Resolved]
  - Large intestinal ulcer [Unknown]
  - Gastrointestinal disorder [Unknown]
  - Asthenia [Unknown]
  - Pain in extremity [Unknown]
  - Pain [Unknown]
  - C-reactive protein increased [Unknown]
  - Muscle tightness [Unknown]
  - Gastrointestinal wall thickening [Unknown]
  - Neck pain [Unknown]
  - Drug effect incomplete [Unknown]
  - Iritis [Recovered/Resolved]
  - Red blood cell sedimentation rate increased [Unknown]
  - Duodenal ulcer [Unknown]
  - Colonic fistula [Recovered/Resolved]
  - Melaena [Unknown]
  - Joint range of motion decreased [Unknown]
  - Anaemia [Unknown]
  - Joint swelling [Unknown]
  - Duodenal stenosis [Unknown]
  - Musculoskeletal stiffness [Unknown]
  - Drug ineffective [Unknown]
  - Haemoglobin decreased [Unknown]
  - Large intestinal stenosis [Recovered/Resolved]
  - Palpitations [Unknown]
  - Jejunal ulcer [Unknown]
  - Gastric dilatation [Unknown]
  - Musculoskeletal discomfort [Unknown]
  - Large intestinal haemorrhage [Unknown]
  - Iron deficiency [Unknown]
  - Colitis [Unknown]
  - Intestinal dilatation [Unknown]
  - Functional gastrointestinal disorder [Recovered/Resolved]
  - Enteritis [Unknown]
  - Sinusitis [Unknown]
  - Large intestinal ulcer [Recovering/Resolving]
  - Gastrointestinal disorder [Unknown]

NARRATIVE: CASE EVENT DATE: 201010
